FAERS Safety Report 10583873 (Version 1)
Quarter: 2014Q4

REPORT INFORMATION
  Report Type: Spontaneous
  Country: US (occurrence: None)
  Receive Date: 20141113
  Receipt Date: 20141113
  Transmission Date: 20150529
  Serious: Yes (Hospitalization, Disabling)
  Sender: FDA-Public Use
  Company Number: None

PATIENT
  Age: 58 Year
  Sex: Male
  Weight: 92.99 kg

DRUGS (2)
  1. ZYRTEC-D [Concomitant]
     Active Substance: CETIRIZINE HYDROCHLORIDE\PSEUDOEPHEDRINE HYDROCHLORIDE
  2. LAMICTAL [Suspect]
     Active Substance: LAMOTRIGINE
     Indication: BIPOLAR DISORDER
     Dosage: 2-4-6 PER DAY, 2X DAY 12 HRS APART
     Route: 048
     Dates: start: 200707, end: 20141024

REACTIONS (9)
  - Fatigue [None]
  - Thinking abnormal [None]
  - Hypophagia [None]
  - Blood glucose abnormal [None]
  - Myocardial infarction [None]
  - Cardiac stress test abnormal [None]
  - Dizziness [None]
  - Asthenia [None]
  - Loss of consciousness [None]

NARRATIVE: CASE EVENT DATE: 20140828
